FAERS Safety Report 12083918 (Version 1)
Quarter: 2016Q1

REPORT INFORMATION
  Report Type: Spontaneous
  Country: FR (occurrence: FR)
  Receive Date: 20160217
  Receipt Date: 20160217
  Transmission Date: 20160526
  Serious: Yes (Hospitalization)
  Sender: FDA-Public Use
  Company Number: PHHY2016FR019127

PATIENT
  Age: 25 Year
  Sex: Male

DRUGS (2)
  1. BUPRENORPHINE. [Suspect]
     Active Substance: BUPRENORPHINE
     Indication: DRUG DEPENDENCE
     Dosage: 8 MG, QD
     Route: 065
  2. NALMEFENE [Interacting]
     Active Substance: NALMEFENE
     Indication: ALCOHOL USE
     Dosage: 18 MG, ONCE/SINGLE
     Route: 048

REACTIONS (2)
  - Drug interaction [Unknown]
  - Withdrawal syndrome [Recovered/Resolved]
